FAERS Safety Report 15384170 (Version 1)
Quarter: 2018Q3

REPORT INFORMATION
  Report Type: Spontaneous
  Country: US (occurrence: US)
  Receive Date: 20180914
  Receipt Date: 20180914
  Transmission Date: 20181010
  Serious: No
  Sender: FDA-Public Use
  Company Number: US-BIOGEN-2018BI00630659

PATIENT
  Sex: Female

DRUGS (2)
  1. TECFIDERA [Suspect]
     Active Substance: DIMETHYL FUMARATE
     Indication: MULTIPLE SCLEROSIS
     Route: 050
  2. AVONEX [Suspect]
     Active Substance: INTERFERON BETA-1A
     Indication: MULTIPLE SCLEROSIS
     Route: 065
     Dates: start: 20060925, end: 20150801

REACTIONS (11)
  - Disturbance in attention [Unknown]
  - Headache [Unknown]
  - Vision blurred [Unknown]
  - Abdominal discomfort [Unknown]
  - Pyrexia [Unknown]
  - Pain [Unknown]
  - Product quality issue [Unknown]
  - Herpes zoster [Unknown]
  - Malaise [Unknown]
  - Bone pain [Unknown]
  - Fatigue [Unknown]
